FAERS Safety Report 9824958 (Version 2)
Quarter: 2014Q1

REPORT INFORMATION
  Report Type: Spontaneous
  Country: DE (occurrence: GB)
  Receive Date: 20140117
  Receipt Date: 20140123
  Transmission Date: 20141002
  Serious: Yes (Other)
  Sender: FDA-Public Use
  Company Number: GB-ASTRAZENECA-2014SE02596

PATIENT
  Age: 81 Year
  Sex: Male

DRUGS (3)
  1. OMEPRAZOLE [Suspect]
     Route: 048
     Dates: start: 201205, end: 20140101
  2. ASPIRIN [Concomitant]
  3. MELOXICAM [Concomitant]

REACTIONS (9)
  - Decreased appetite [Recovering/Resolving]
  - Balance disorder [Recovering/Resolving]
  - Folliculitis [Recovering/Resolving]
  - Hearing impaired [Recovering/Resolving]
  - Skin irritation [Recovering/Resolving]
  - Visual impairment [Recovering/Resolving]
  - Weight decreased [Recovering/Resolving]
  - Hypersensitivity [Recovering/Resolving]
  - Rash [Recovering/Resolving]
